FAERS Safety Report 9373824 (Version 2)
Quarter: 2013Q3

REPORT INFORMATION
  Report Type: Report from Study
  Country: AR (occurrence: AR)
  Receive Date: 20130628
  Receipt Date: 20130705
  Transmission Date: 20140515
  Serious: Yes (Death)
  Sender: FDA-Public Use
  Company Number: AR-ROCHE-1241929

PATIENT
  Sex: Male
  Weight: 86 kg

DRUGS (4)
  1. MABTHERA [Suspect]
     Indication: B-CELL LYMPHOMA
     Route: 065
     Dates: start: 20120915
  2. CYCLOPHOSPHAMIDE [Concomitant]
     Indication: B-CELL LYMPHOMA
  3. VINCRISTINE [Concomitant]
     Indication: B-CELL LYMPHOMA
  4. PREDNISOLONE [Concomitant]
     Indication: B-CELL LYMPHOMA

REACTIONS (1)
  - Salmonella sepsis [Fatal]
